FAERS Safety Report 20467617 (Version 2)
Quarter: 2022Q2

REPORT INFORMATION
  Report Type: Report from Study
  Country: DE (occurrence: DE)
  Receive Date: 20220214
  Receipt Date: 20220420
  Transmission Date: 20220721
  Serious: Yes (Death, Hospitalization)
  Sender: FDA-Public Use
  Company Number: DE-INSMED, INC.-2021-09266-DE

PATIENT
  Age: 57 Year
  Sex: Female

DRUGS (4)
  1. ARIKAYCE [Suspect]
     Active Substance: AMIKACIN
     Indication: Mycobacterial infection
     Dosage: 295 MILLIGRAM, QD
     Route: 055
     Dates: start: 20210816, end: 202108
  2. ARIKAYCE [Suspect]
     Active Substance: AMIKACIN
     Dosage: 590 MILLIGRAM, QD
     Route: 055
     Dates: start: 202108, end: 2021
  3. ARIKAYCE [Suspect]
     Active Substance: AMIKACIN
     Dosage: 295 MILLIGRAM, QOD
     Route: 055
     Dates: start: 20211021, end: 20211101
  4. ARIKAYCE [Suspect]
     Active Substance: AMIKACIN
     Dosage: 295 MILLIGRAM, ONLY ONE TO TWO TIMES A WEEK
     Route: 055
     Dates: start: 20211101

REACTIONS (9)
  - Death [Fatal]
  - Intensive care [Unknown]
  - Sensation of foreign body [Recovered/Resolved]
  - Sensation of foreign body [Not Recovered/Not Resolved]
  - Nasopharyngitis [Recovered/Resolved]
  - Secretion discharge [Not Recovered/Not Resolved]
  - Nasopharyngitis [Unknown]
  - Productive cough [Unknown]
  - Off label use [Unknown]

NARRATIVE: CASE EVENT DATE: 20210101
